FAERS Safety Report 19002884 (Version 1)
Quarter: 2021Q1

REPORT INFORMATION
  Report Type: Report from Study
  Country: HN (occurrence: HN)
  Receive Date: 20210312
  Receipt Date: 20210312
  Transmission Date: 20210420
  Serious: Yes (Other)
  Sender: FDA-Public Use
  Company Number: NVSC2021HN052644

PATIENT
  Age: 83 Year
  Sex: Female

DRUGS (1)
  1. CO?DIOVAN [Suspect]
     Active Substance: HYDROCHLOROTHIAZIDE\VALSARTAN
     Indication: PRODUCT USED FOR UNKNOWN INDICATION
     Dosage: 25/320 MG (STARTED 4 YEARS AGO APPROXIMATELY AND STOPPED 1 YEAR AGO)
     Route: 065

REACTIONS (1)
  - Cardiac hypertrophy [Unknown]
